FAERS Safety Report 5459103-5 (Version None)
Quarter: 2007Q3

REPORT INFORMATION
  Report Type: 
  Country: None (occurrence: None)
  Receive Date: 20070919
  Receipt Date: 20070912
  Transmission Date: 20080115
  Serious: Yes (Life-Threatening, Other)
  Sender: FDA-Public Use
  Company Number: DEWYE296412SEP07

PATIENT
  Sex: Female
  Weight: 3.45 kg

DRUGS (2)
  1. VENLAFAXINE HCL [Suspect]
     Indication: ANXIETY DISORDER
     Dosage: 150 MG IN THE MORNING AND 75 MG IN THE EVENING
     Route: 064
     Dates: end: 20070201
  2. VENLAFAXINE HCL [Suspect]
     Dosage: 150 MG IN THE MORNING
     Route: 064
     Dates: start: 20070201

REACTIONS (3)
  - ANAEMIA NEONATAL [None]
  - CYANOSIS NEONATAL [None]
  - DRUG EXPOSURE DURING PREGNANCY [None]
